FAERS Safety Report 16324357 (Version 1)
Quarter: 2019Q2

REPORT INFORMATION
  Report Type: Spontaneous
  Country: US (occurrence: US)
  Receive Date: 20190517
  Receipt Date: 20190517
  Transmission Date: 20190711
  Serious: Yes (Other)
  Sender: FDA-Public Use
  Company Number: US-TEVA-2019-US-1049105

PATIENT
  Sex: Female

DRUGS (1)
  1. CLONAZEPAM ACTAVIS [Suspect]
     Active Substance: CLONAZEPAM
     Dosage: TOOK HALF OF ONE TABLET

REACTIONS (6)
  - Neoplasm malignant [Unknown]
  - Insomnia [Unknown]
  - Burning sensation [Unknown]
  - Tinnitus [Unknown]
  - Drug ineffective [Unknown]
  - Apathy [Unknown]
